FAERS Safety Report 9179482 (Version 1)
Quarter: 2013Q1

REPORT INFORMATION
  Report Type: Spontaneous
  Country: AR (occurrence: AR)
  Receive Date: 20130321
  Receipt Date: 20130321
  Transmission Date: 20140127
  Serious: Yes (Other)
  Sender: FDA-Public Use
  Company Number: AR-ROCHE-1204048

PATIENT
  Sex: Female

DRUGS (1)
  1. LUCENTIS [Suspect]
     Indication: EYE DISORDER
     Route: 050

REACTIONS (5)
  - Scotoma [Unknown]
  - Cataract [Recovering/Resolving]
  - Fall [Unknown]
  - Limb discomfort [Unknown]
  - Visual acuity reduced [Unknown]
